FAERS Safety Report 10151288 (Version 1)
Quarter: 2014Q2

REPORT INFORMATION
  Report Type: Spontaneous
  Country: US (occurrence: US)
  Receive Date: 20140502
  Receipt Date: 20140502
  Transmission Date: 20141212
  Serious: No
  Sender: FDA-Public Use
  Company Number: US-ASTRAZENECA-2013SE52322

PATIENT
  Age: 65 Year
  Sex: Male

DRUGS (5)
  1. PRILOSEC OTC [Suspect]
     Indication: GASTROOESOPHAGEAL REFLUX DISEASE
     Route: 048
     Dates: start: 20130617
  2. FENOFIBRATE [Concomitant]
     Dosage: UNKNOWN
  3. FITORIN [Concomitant]
     Dosage: UNKNOWN
  4. FLUOXETINE [Concomitant]
     Dosage: UNKNOWN
  5. VALSARTAN/HYDROCHLOORTHIAZIDE [Concomitant]
     Dosage: UNKNOWN

REACTIONS (2)
  - Migraine [Recovering/Resolving]
  - Nausea [Recovering/Resolving]
